FAERS Safety Report 25646939 (Version 1)
Quarter: 2025Q3

REPORT INFORMATION
  Report Type: Spontaneous
  Country: US (occurrence: US)
  Receive Date: 20250805
  Receipt Date: 20250805
  Transmission Date: 20251020
  Serious: No
  Sender: SANDOZ
  Company Number: US-SANDOZ-SDZ2025US055671

PATIENT
  Age: 43 Year
  Sex: Female

DRUGS (1)
  1. BIMATOPROST [Suspect]
     Active Substance: BIMATOPROST
     Indication: Product used for unknown indication
     Route: 047
     Dates: start: 202411

REACTIONS (4)
  - Eye irritation [Unknown]
  - Product contamination [Unknown]
  - Product odour abnormal [Unknown]
  - Poor quality product administered [Unknown]
